FAERS Safety Report 7544304-2 (Version None)
Quarter: 2011Q2

REPORT INFORMATION
  Report Type: 
  Country: None (occurrence: None)
  Receive Date: 20110613
  Receipt Date: 20080318
  Transmission Date: 20111010
  Serious: Yes (Other)
  Sender: FDA-Public Use
  Company Number: PHFR2005GB03201

PATIENT
  Sex: Male

DRUGS (2)
  1. CLOZAPINE [Suspect]
     Indication: SCHIZOPHRENIA
     Dosage: 500 MG DAILY
     Route: 065
     Dates: start: 19930120, end: 20080131
  2. LITHIUM [Suspect]
     Dosage: 600 MG NOCTE
     Route: 048
     Dates: start: 19960101

REACTIONS (9)
  - RENAL CYST [None]
  - MENTAL IMPAIRMENT [None]
  - RENAL IMPAIRMENT [None]
  - BLOOD CREATININE INCREASED [None]
  - POLYDIPSIA [None]
  - KIDNEY SMALL [None]
  - RENAL FAILURE [None]
  - MICTURITION FREQUENCY DECREASED [None]
  - ANTIPSYCHOTIC DRUG LEVEL INCREASED [None]
